FAERS Safety Report 16343321 (Version 2)
Quarter: 2019Q2

REPORT INFORMATION
  Report Type: Spontaneous
  Country: US (occurrence: US)
  Receive Date: 20190522
  Receipt Date: 20190625
  Transmission Date: 20190711
  Serious: Yes (Hospitalization, Other)
  Sender: FDA-Public Use
  Company Number: US-PFIZER INC-2019211781

PATIENT
  Age: 54 Year
  Sex: Female
  Weight: 92.8 kg

DRUGS (32)
  1. OXYBUTYNIN CHLORIDE. [Concomitant]
     Active Substance: OXYBUTYNIN CHLORIDE
     Dosage: 10 MG, DAILY (TAKE 1 TABLET BY MOUTH EVERY DAY)
     Route: 048
  2. CLOBETASOL PROPIONATE. [Concomitant]
     Active Substance: CLOBETASOL PROPIONATE
     Indication: URTICARIA
     Dosage: UNK UNK, 2X/DAY [APPLY TO AFFECTED AREA TWICE A DAY TO ACTIVE HIVES, NOT ON FACE.]
  3. CITALOPRAM HYDROBROMIDE. [Concomitant]
     Active Substance: CITALOPRAM HYDROBROMIDE
     Dosage: 10 MG, DAILY [TAKE 1 TABLET BY MOUTH EVERY DAY ]
     Route: 048
  4. VENTOLIN HFA [Concomitant]
     Active Substance: ALBUTEROL SULFATE
     Indication: DYSPNOEA
     Dosage: 2 DF, AS NEEDED (INHALE 2 PUFFS BY MOUTH EVERY 6 HOURS AS NEEDED)
     Route: 048
  5. HYDROCORTISONE ACETATE. [Concomitant]
     Active Substance: HYDROCORTISONE ACETATE
     Indication: SKIN EXFOLIATION
  6. DUAVEE [Suspect]
     Active Substance: BAZEDOXIFENE ACETATE\ESTROGENS, CONJUGATED
     Indication: MENOPAUSAL SYMPTOMS
     Dosage: 20MG-0.45MG TABLETS, 1X/DAY
     Route: 048
     Dates: start: 20170605
  7. LIDOCAINE. [Concomitant]
     Active Substance: LIDOCAINE
     Dosage: UNK (1 APPLICATION TO AFFECTED AREA AS NEEDED EXTERNALLY THREE TIMES A DAY)
     Route: 061
     Dates: start: 20190520
  8. PREDNISONE. [Concomitant]
     Active Substance: PREDNISONE
     Dosage: 5 MG, DAILY [TAKE 1 TABLET BY MOUTH EVERY DAY]
     Route: 048
  9. ONDANSETRON HCL [Concomitant]
     Active Substance: ONDANSETRON HYDROCHLORIDE
     Indication: VOMITING
  10. OXYBUTYNIN CHLORIDE. [Concomitant]
     Active Substance: OXYBUTYNIN CHLORIDE
     Dosage: 5 MG, 3X/DAY (TAKE 1 TABLET BY MOUTH THREE TIMES A DAY)
     Route: 048
  11. VALACYCLOVIR HCL [Concomitant]
     Active Substance: VALACYCLOVIR HYDROCHLORIDE
     Dosage: 1000 MG, 2X/DAY [2 TABLETS  ORALLY  EVERY  12  HRS  ]
     Route: 048
     Dates: start: 20171214
  12. ONDANSETRON HCL [Concomitant]
     Active Substance: ONDANSETRON HYDROCHLORIDE
     Indication: NAUSEA
     Dosage: 8 MG, AS NEEDED [TAKE 1 TABLET BY MOUTH EVERY 12 HOURS AS NEEDED]
     Route: 048
  13. HYDROCORTISONE ACETATE. [Concomitant]
     Active Substance: HYDROCORTISONE ACETATE
     Indication: PRURITUS
     Dosage: UNK, 2X/DAY ([APPLY TWICE DAILY TO AFFECTED ITCHY, RED, FLAKY AREAS OF THE FACE])
     Route: 061
  14. DUAVEE [Suspect]
     Active Substance: BAZEDOXIFENE ACETATE\ESTROGENS, CONJUGATED
     Dosage: 1 DF, 1X/DAY (1 TABLET ORALLY ONCE A DAY)
     Route: 048
     Dates: start: 20181226
  15. GLYCOPYRROLATE [GLYCOPYRRONIUM] [Concomitant]
     Dosage: 1 MG, 2X/DAY (TAKE 1/2 TAB (1MG) TWICE DAILY)
     Route: 048
  16. ACYCLOVIR [ACICLOVIR] [Concomitant]
     Active Substance: ACYCLOVIR
     Dosage: UNK, AS NEEDED (1 APPLICATION TO AFFECTED AREA EXTERNALLY PRN)
  17. OMEPRAZOLE. [Concomitant]
     Active Substance: OMEPRAZOLE
     Dosage: 20 MG, 2X/DAY (TAKE ONE CAPSULE BY MOUTH TWICE A DAY BEFORE A MEAL)
     Route: 048
  18. DICYCLOMINE HCL [Concomitant]
     Active Substance: DICYCLOMINE HYDROCHLORIDE
     Indication: ABDOMINAL PAIN
     Dosage: 10 MG, AS NEEDED [TAKE 1 CAPSULE BY MOUTH EVERY 6 HOURS AS NEEDED]
     Route: 048
  19. LISINOPRIL. [Concomitant]
     Active Substance: LISINOPRIL
     Dosage: 10 MG, DAILY [TAKE 1 TABLET BY MOUTH DAILY]
     Route: 048
  20. NAPROXEN. [Concomitant]
     Active Substance: NAPROXEN
     Dosage: 500 MG, 2X/DAY [TAKE 1 TABLET BY MOUTH TWICE A DAY WITH MEALS]
     Route: 048
  21. CETIRIZIN [Concomitant]
     Active Substance: CETIRIZINE HYDROCHLORIDE
     Dosage: 10 MG, 2X/DAY [TAKE 1 TABLET BY MOUTH TWICE A DAY]
     Route: 048
  22. HYDROCORTISONE ACETATE. [Concomitant]
     Active Substance: HYDROCORTISONE ACETATE
     Indication: ERYTHEMA
  23. VALTREX [Concomitant]
     Active Substance: VALACYCLOVIR HYDROCHLORIDE
     Dosage: 1000 MG, 1X/DAY [SIG:  2 TABLETS  ORALLY ONCE A DAY START ]
     Route: 048
     Dates: start: 20190109
  24. RANITIDINE HYDROCHLORIDE. [Concomitant]
     Active Substance: RANITIDINE HYDROCHLORIDE
     Indication: BREAKTHROUGH PAIN
     Dosage: 150 MG, AS NEEDED [TAKE 1 TABLET BY MOUTH 2 TIMES A DAY AS NEEDED]
     Route: 048
  25. LEVOTHYROXINE SODIUM. [Concomitant]
     Active Substance: LEVOTHYROXINE SODIUM
     Dosage: 50 UG, DAILY (TAKE 1 TABLET BY MOUTH EVERY DAY)
     Route: 048
  26. DUAVEE [Suspect]
     Active Substance: BAZEDOXIFENE ACETATE\ESTROGENS, CONJUGATED
     Dosage: 1 DF, 1X/DAY (1 TABLET ORALLY ONCE A DAY)
     Route: 048
     Dates: start: 20171211
  27. ACYCLOVIR [ACICLOVIR] [Concomitant]
     Active Substance: ACYCLOVIR
     Dosage: UNK UNK, UNK [1 APPLICATION TO  AFFECTED AREA EXTERN ALLY  FIVE TIMES A DAY]
     Route: 061
  28. FLUTICASONE PROPIONATE. [Concomitant]
     Active Substance: FLUTICASONE PROPIONATE
     Dosage: UNK UNK, DAILY (50 MCG/ACT SUSPENSION/SPRAY 2 SPRAYS INTO EACH NOSTRIL EVERY DAY NASAL)
     Route: 045
  29. FLUCONAZOLE. [Concomitant]
     Active Substance: FLUCONAZOLE
     Dosage: 100 MG, DAILY [TAKE 1 TABLET BY MOUTH EVERY DAY    ]
     Route: 048
  30. CYANOCOBALAMIN. [Concomitant]
     Active Substance: CYANOCOBALAMIN
     Dosage: 1000 UG/ML, MONTHLY [1 INJECT 1 ML SUBCUTANEOUSLY EVERY MONTH]
     Route: 058
  31. CLOTRIMAZOLE. [Concomitant]
     Active Substance: CLOTRIMAZOLE
     Dosage: 50 MG, DAILY (FIVE TIMES A DAY)
     Route: 048
  32. PROCTOSOL [Concomitant]
     Dosage: UNK UNK, 2X/DAY [1 APPLICATION TO AFFECTED AREA RECTAL TWICE A DAY]
     Route: 054

REACTIONS (3)
  - Dehydration [Recovered/Resolved]
  - Diabetes mellitus [Recovered/Resolved]
  - Acute kidney injury [Recovered/Resolved]

NARRATIVE: CASE EVENT DATE: 201901
